FAERS Safety Report 24708905 (Version 1)
Quarter: 2024Q4

REPORT INFORMATION
  Report Type: Report from Study
  Country: GB (occurrence: GB)
  Receive Date: 20241208
  Receipt Date: 20241208
  Transmission Date: 20250115
  Serious: Yes (Other)
  Sender: UCB
  Company Number: GB-UCBSA-2024002313

PATIENT
  Sex: Female

DRUGS (1)
  1. CERTOLIZUMAB PEGOL [Suspect]
     Active Substance: CERTOLIZUMAB PEGOL
     Indication: Psoriatic arthropathy
     Dosage: 200 MILLIGRAM, EV 3 WEEKS
     Route: 058

REACTIONS (6)
  - Lower respiratory tract infection [Unknown]
  - Alopecia [Recovering/Resolving]
  - Stress [Unknown]
  - Therapy interrupted [Unknown]
  - Product prescribing error [Unknown]
  - Off label use [Unknown]
